FAERS Safety Report 19659924 (Version 1)
Quarter: 2021Q3

REPORT INFORMATION
  Report Type: Spontaneous
  Country: US (occurrence: US)
  Receive Date: 20210804
  Receipt Date: 20210804
  Transmission Date: 20211014
  Serious: Yes (Other)
  Sender: FDA-Public Use
  Company Number: None

PATIENT
  Age: 55 Year
  Sex: Female
  Weight: 45.45 kg

DRUGS (4)
  1. GAMUNEX?C [Suspect]
     Active Substance: HUMAN IMMUNOGLOBULIN G
     Indication: ACUTE SINUSITIS
     Dosage: ?          OTHER FREQUENCY:ONCE EVERY 3 WEEKS;?
     Route: 042
     Dates: start: 20210721, end: 20210721
  2. GAMUNEX?C [Suspect]
     Active Substance: HUMAN IMMUNOGLOBULIN G
     Indication: HYPOGAMMAGLOBULINAEMIA
     Dosage: ?          OTHER FREQUENCY:ONCE EVERY 3 WEEKS;?
     Route: 042
     Dates: start: 20210721, end: 20210721
  3. GAMUNEX?C [Suspect]
     Active Substance: HUMAN IMMUNOGLOBULIN G
     Indication: ACUTE SINUSITIS
     Dosage: ?          OTHER FREQUENCY:ONCE EVERY 3 WEEKS;?
     Route: 042
     Dates: start: 20210721, end: 20210721
  4. GAMUNEX?C [Suspect]
     Active Substance: HUMAN IMMUNOGLOBULIN G
     Indication: HYPOGAMMAGLOBULINAEMIA
     Dosage: ?          OTHER FREQUENCY:ONCE EVERY 3 WEEKS;?
     Route: 042
     Dates: start: 20210721, end: 20210721

REACTIONS (2)
  - Urticaria [None]
  - Pruritus [None]

NARRATIVE: CASE EVENT DATE: 20210721
